FAERS Safety Report 5603296-3 (Version None)
Quarter: 2008Q1

REPORT INFORMATION
  Report Type: 
  Country: None (occurrence: None)
  Receive Date: 20080123
  Receipt Date: 20080110
  Transmission Date: 20080703
  Serious: Yes (Hospitalization)
  Sender: FDA-Public Use
  Company Number: 2008SP000756

PATIENT
  Age: 60 Year
  Sex: Male
  Weight: 80.3 kg

DRUGS (8)
  1. TEMOZOLOMIDE [Suspect]
     Indication: COLORECTAL CANCER
     Dosage: 300 MG; QD; PO
     Route: 048
     Dates: start: 20071201, end: 20080105
  2. ATENOLOL [Concomitant]
  3. AMLODIPINE [Concomitant]
  4. ASPIRIN [Concomitant]
  5. BENDROFLUAZIDE [Concomitant]
  6. LANSOPRAZOLE [Concomitant]
  7. SIMVASTATIN [Concomitant]
  8. PERINDOPRIL [Concomitant]

REACTIONS (2)
  - HAEMATEMESIS [None]
  - UPPER GASTROINTESTINAL HAEMORRHAGE [None]
